FAERS Safety Report 16956109 (Version 2)
Quarter: 2020Q1

REPORT INFORMATION
  Report Type: Spontaneous
  Country: GB (occurrence: GB)
  Receive Date: 20191024
  Receipt Date: 20200113
  Transmission Date: 20200409
  Serious: Yes (Life-Threatening)
  Sender: FDA-Public Use
  Company Number: GB-ACCORD-158867

PATIENT
  Age: 63 Year
  Sex: Female
  Weight: 81 kg

DRUGS (23)
  1. SALICYLATE SODIUM/SALICYLIC ACID/SALICYLIC ACID TRIETHANOLAMINE [Concomitant]
     Active Substance: SODIUM SALICYLATE
     Dosage: APPLY 4 TIMES/DAY
     Dates: start: 20190509
  2. BENDROFLUMETHIAZIDE [Concomitant]
     Active Substance: BENDROFLUMETHIAZIDE
     Dosage: EACH MORNING
     Dates: start: 20190509
  3. RAMIPRIL. [Suspect]
     Active Substance: RAMIPRIL
     Indication: HYPERTENSION
     Dates: start: 20190916, end: 20190924
  4. AMITRIPTYLINE [Concomitant]
     Active Substance: AMITRIPTYLINE
     Dosage: AT NIGHT
     Dates: start: 20190509
  5. LANSOPRAZOLE. [Concomitant]
     Active Substance: LANSOPRAZOLE
     Dates: start: 20190509
  6. GABAPENTIN. [Concomitant]
     Active Substance: GABAPENTIN
     Dates: start: 20190509
  7. LOSARTAN. [Concomitant]
     Active Substance: LOSARTAN
     Dates: start: 20190924
  8. HYDROXOCOBALAMIN/HYDROXOCOBALAMIN ACETATE/HYDROXOCOBALAMIN HYDROCHLORIDE [Concomitant]
     Active Substance: HYDROXOCOBALAMIN
     Dates: start: 20190724, end: 20190725
  9. ESTRADIOL. [Concomitant]
     Active Substance: ESTRADIOL
     Dates: start: 20190509
  10. SYMBICORT [Concomitant]
     Active Substance: BUDESONIDE\FORMOTEROL FUMARATE DIHYDRATE
     Route: 055
     Dates: start: 20190509
  11. TRAMADOL. [Concomitant]
     Active Substance: TRAMADOL
     Dates: start: 20190509
  12. LIDOCAINE. [Concomitant]
     Active Substance: LIDOCAINE
     Dosage: APPLY SEVERAL TIMES DAILY; FOR SHORT-TERM USE ONLY
     Dates: start: 20190916, end: 20190923
  13. NAPROXEN. [Concomitant]
     Active Substance: NAPROXEN
     Dosage: AFTER FOOD
     Dates: start: 20190716, end: 20190723
  14. SALBUTAMOL [Concomitant]
     Active Substance: ALBUTEROL
     Route: 055
     Dates: start: 20190509
  15. PROCTOSEDYL [Concomitant]
     Active Substance: DIBUCAINE HYDROCHLORIDE\HYDROCORTISONE
     Dosage: INSERT ONE AS NEEDED
     Dates: start: 20190916, end: 20190920
  16. CHLORPHENAMINE/CHLORPHENAMINE MALEATE/CHLORPHENAMINE RESINATE/CHLORPHENAMINE TANNATE [Concomitant]
     Active Substance: CHLORPHENIRAMINE
     Dates: start: 20190509
  17. ATORVASTATIN [Concomitant]
     Active Substance: ATORVASTATIN
     Indication: BLOOD CHOLESTEROL INCREASED
     Dosage: AT NIGHT
     Dates: start: 20190916
  18. BISACODYL. [Concomitant]
     Active Substance: BISACODYL
     Dosage: AT NIGHT
     Dates: start: 20190509
  19. LACTULOSE. [Concomitant]
     Active Substance: LACTULOSE
     Dates: start: 20190509
  20. MEBEVERINE [Concomitant]
     Active Substance: MEBEVERINE
     Dates: start: 20190509
  21. ZOMORPH [Concomitant]
     Active Substance: MORPHINE SULFATE
     Dates: start: 20190509
  22. RANITIDINE. [Concomitant]
     Active Substance: RANITIDINE
     Dates: start: 20190509
  23. ESTRIOL [Concomitant]
     Active Substance: ESTRIOL
     Dosage: APPLY EVERY NIGHT FOR 2 WEEKS THEN TWICE A WEEK
     Dates: start: 20190916, end: 20190930

REACTIONS (1)
  - Anaphylactic reaction [Recovered/Resolved]
